FAERS Safety Report 6800587-5 (Version None)
Quarter: 2010Q2

REPORT INFORMATION
  Report Type: 
  Country: None (occurrence: None)
  Receive Date: 20100625
  Receipt Date: 20100625
  Transmission Date: 20101027
  Serious: Yes (Hospitalization)
  Sender: FDA-Public Use
  Company Number: None

PATIENT
  Age: 79 Year
  Sex: Male

DRUGS (2)
  1. ASPIRIN [Suspect]
     Indication: CORONARY ARTERY DISEASE
     Dosage: 81 MG EVERY DAY PO
     Route: 048
     Dates: start: 20070426
  2. WARFARIN SODIUM [Suspect]
     Indication: ATRIAL FIBRILLATION
     Dosage: 3.57 MG EVERY DAY PO
     Route: 048
     Dates: start: 20050725, end: 20100618

REACTIONS (3)
  - ANAEMIA [None]
  - BLOOD HOMOCYSTEINE INCREASED [None]
  - GASTRIC HAEMORRHAGE [None]
